FAERS Safety Report 24377630 (Version 1)
Quarter: 2024Q3

REPORT INFORMATION
  Report Type: Spontaneous
  Country: US (occurrence: None)
  Receive Date: 20240928
  Receipt Date: 20240928
  Transmission Date: 20241016
  Serious: No
  Sender: Public
  Company Number: None

PATIENT
  Age: 69 Year
  Sex: Female
  Weight: 77.85 kg

DRUGS (27)
  1. VYEPTI [Suspect]
     Active Substance: EPTINEZUMAB-JJMR
     Indication: Migraine prophylaxis
     Dosage: OTHER FREQUENCY : Q3MONTHS X 30 MINS?
     Route: 042
     Dates: start: 20240906, end: 20240906
  2. RANEXA [Concomitant]
     Active Substance: RANOLAZINE
  3. AMLODIPINE [Concomitant]
     Active Substance: AMLODIPINE BESYLATE
  4. LOSARTAN [Concomitant]
     Active Substance: LOSARTAN\LOSARTAN POTASSIUM
  5. METOPROLOL [Concomitant]
     Active Substance: METOPROLOL
  6. HYDROCHLOROTHIAZIDE [Concomitant]
     Active Substance: HYDROCHLOROTHIAZIDE
  7. OMEPRAZOLE [Concomitant]
     Active Substance: OMEPRAZOLE
  8. FAMOTIDINE [Concomitant]
     Active Substance: FAMOTIDINE
  9. LINZESS [Concomitant]
     Active Substance: LINACLOTIDE
  10. DOCUSATE [Concomitant]
     Active Substance: DOCUSATE
  11. low-dose asa [Concomitant]
  12. certirizine [Concomitant]
  13. ALPRAZOLAM [Concomitant]
     Active Substance: ALPRAZOLAM
  14. CLONAZEPAM [Concomitant]
     Active Substance: CLONAZEPAM
  15. SERTRALINE [Concomitant]
     Active Substance: SERTRALINE HYDROCHLORIDE
  16. ROSUVASTATIN [Concomitant]
     Active Substance: ROSUVASTATIN\ROSUVASTATIN CALCIUM
  17. EZETIMIBE [Concomitant]
     Active Substance: EZETIMIBE
  18. TRAZODONE [Concomitant]
     Active Substance: TRAZODONE HYDROCHLORIDE
  19. UBRELVY [Concomitant]
     Active Substance: UBROGEPANT
  20. zofran [Concomitant]
  21. meclazine [Concomitant]
  22. VITAMIN D3 [Concomitant]
     Active Substance: CHOLECALCIFEROL
  23. MAGNESIUM OXIDE [Concomitant]
  24. VITAMINS [Concomitant]
     Active Substance: VITAMINS
  25. VITAMIN B12 [Concomitant]
     Active Substance: CYANOCOBALAMIN
  26. IRON [Concomitant]
     Active Substance: IRON
  27. BIOTIN [Concomitant]

REACTIONS (3)
  - Bronchitis [None]
  - Malaise [None]
  - Dysphagia [None]

NARRATIVE: CASE EVENT DATE: 20240915
